FAERS Safety Report 19666928 (Version 2)
Quarter: 2021Q3

REPORT INFORMATION
  Report Type: Report from Study
  Country: NL (occurrence: NL)
  Receive Date: 20210806
  Receipt Date: 20210827
  Transmission Date: 20211014
  Serious: Yes (Other)
  Sender: FDA-Public Use
  Company Number: NVSC2021NL175360

PATIENT
  Age: 69 Year
  Sex: Male

DRUGS (3)
  1. ACLASTA [Suspect]
     Active Substance: ZOLEDRONIC ACID
     Indication: OSTEOPOROSIS
     Dosage: 5 MG, Q12MO (ONCE PER 52 WEEKS) (250 ML/UUR)
     Route: 042
     Dates: start: 20180806
  2. ACLASTA [Suspect]
     Active Substance: ZOLEDRONIC ACID
     Dosage: 5 MG, Q12MO  (ONCE PER 52 WEEKS) (250 ML/UUR)
     Route: 042
     Dates: start: 20200817
  3. ACLASTA [Suspect]
     Active Substance: ZOLEDRONIC ACID
     Dosage: UNK
     Route: 065
     Dates: start: 20210730

REACTIONS (5)
  - Blood pressure decreased [Recovering/Resolving]
  - Syncope [Unknown]
  - Systemic mastocytosis [Unknown]
  - Hyperhidrosis [Recovering/Resolving]
  - Heart rate decreased [Recovering/Resolving]

NARRATIVE: CASE EVENT DATE: 20210730
